FAERS Safety Report 8006753-8 (Version None)
Quarter: 2011Q4

REPORT INFORMATION
  Report Type: 
  Country: None (occurrence: None)
  Receive Date: 20111227
  Receipt Date: 20111219
  Transmission Date: 20120403
  Serious: Yes (Hospitalization)
  Sender: FDA-Public Use
  Company Number: US-AMGEN-USASP2011067602

PATIENT
  Age: 59 Year
  Sex: Female

DRUGS (3)
  1. FOLIC ACID [Concomitant]
  2. ENBREL [Suspect]
     Indication: RHEUMATOID ARTHRITIS
     Dosage: 50 MG, QWK
     Dates: start: 20041001
  3. TREXALL [Concomitant]

REACTIONS (3)
  - ORAL PAIN [None]
  - CONTUSION [None]
  - STRESS [None]
